FAERS Safety Report 16959073 (Version 2)
Quarter: 2019Q4

REPORT INFORMATION
  Report Type: Spontaneous
  Country: FR (occurrence: FR)
  Receive Date: 20191024
  Receipt Date: 20191105
  Transmission Date: 20200122
  Serious: Yes (Hospitalization)
  Sender: FDA-Public Use
  Company Number: FR-AUROBINDO-AUR-APL-2019-069346

PATIENT
  Age: 53 Year
  Sex: Female
  Weight: 60 kg

DRUGS (1)
  1. OXALIPLATIN ARROW [Suspect]
     Active Substance: OXALIPLATIN
     Indication: OVARIAN CANCER
     Dosage: 120 MILLIGRAM
     Route: 042
     Dates: start: 20190827

REACTIONS (3)
  - Nausea [Recovered/Resolved]
  - Oedema mouth [Recovered/Resolved]
  - Paraesthesia [Recovered/Resolved]

NARRATIVE: CASE EVENT DATE: 20190827
